FAERS Safety Report 7391652-5 (Version None)
Quarter: 2011Q2

REPORT INFORMATION
  Report Type: 
  Country: None (occurrence: None)
  Receive Date: 20110404
  Receipt Date: 20110323
  Transmission Date: 20111010
  Serious: Yes (Hospitalization, Other)
  Sender: FDA-Public Use
  Company Number: US-ELI_LILLY_AND_COMPANY-US201103007712

PATIENT
  Age: 60 Year
  Sex: Male

DRUGS (3)
  1. INTEGRILIN [Concomitant]
     Dosage: UNK, UNKNOWN
     Route: 065
  2. EFFIENT [Suspect]
     Dosage: 10 MG, UNKNOWN
     Route: 065
  3. EFFIENT [Suspect]
     Indication: STENT PLACEMENT
     Dosage: UNK LOADING DOSE
     Route: 065

REACTIONS (1)
  - MYOCARDIAL INFARCTION [None]
